FAERS Safety Report 7814780-6 (Version None)
Quarter: 2011Q4

REPORT INFORMATION
  Report Type: 
  Country: None (occurrence: None)
  Receive Date: 20111014
  Receipt Date: 20111007
  Transmission Date: 20120403
  Serious: Yes (Hospitalization)
  Sender: FDA-Public Use
  Company Number: US-SANOFI-AVENTIS-2010SA034661

PATIENT
  Age: 73 Year
  Sex: Female
  Weight: 91.16 kg

DRUGS (15)
  1. CLOPIDOGREL BISULFATE [Suspect]
     Indication: ACUTE CORONARY SYNDROME
     Route: 048
     Dates: start: 20100308, end: 20100516
  2. LANTUS [Concomitant]
     Dates: start: 20100301
  3. ASCORBIC ACID [Concomitant]
     Dates: start: 20050101
  4. ASPIRIN [Concomitant]
     Dates: start: 20100301
  5. BENAZEPRIL HYDROCHLORIDE [Concomitant]
     Dates: start: 20100303
  6. LASIX [Concomitant]
     Dates: start: 20100301
  7. NORVASC [Concomitant]
     Dates: start: 20100322
  8. CLOPIDOGREL BISULFATE [Suspect]
     Route: 048
     Dates: start: 20100601
  9. NOVOLOG [Concomitant]
     Dates: start: 20040101
  10. ZANTAC [Concomitant]
     Dates: start: 20091119
  11. POTASSIUM [Concomitant]
     Dates: start: 20100301
  12. VITAMIN E [Concomitant]
     Dates: start: 20080101
  13. MULTI-VITAMINS [Concomitant]
     Dates: start: 20100330
  14. OSTEO BI-FLEX [Concomitant]
     Dates: start: 20100325
  15. IMDUR [Concomitant]
     Dates: start: 20100302

REACTIONS (3)
  - EROSIVE OESOPHAGITIS [None]
  - DIABETIC KETOACIDOSIS [None]
  - IMPAIRED GASTRIC EMPTYING [None]
